FAERS Safety Report 15049615 (Version 3)
Quarter: 2019Q2

REPORT INFORMATION
  Report Type: Report from Study
  Country: US (occurrence: US)
  Receive Date: 20180622
  Receipt Date: 20190624
  Transmission Date: 20190711
  Serious: Yes (Death, Hospitalization)
  Sender: FDA-Public Use
  Company Number: US-KERYX BIOPHARMACEUTICALS INC.-2018US004072

PATIENT
  Age: 69 Year
  Sex: Male

DRUGS (1)
  1. AURYXIA [Suspect]
     Active Substance: TETRAFERRIC TRICITRATE DECAHYDRATE
     Indication: HYPERPHOSPHATAEMIA
     Dosage: 5 G (5 TABLETS), QD
     Route: 048
     Dates: start: 20180215

REACTIONS (2)
  - Death [Fatal]
  - Mental impairment [Fatal]

NARRATIVE: CASE EVENT DATE: 20180529
